FAERS Safety Report 18475647 (Version 2)
Quarter: 2022Q4

REPORT INFORMATION
  Report Type: Report from Study
  Country: CA (occurrence: CA)
  Receive Date: 20201106
  Receipt Date: 20221222
  Transmission Date: 20230113
  Serious: Yes (Hospitalization, Other)
  Sender: FDA-Public Use
  Company Number: CA-BAUSCH-BL-2020-031628

PATIENT
  Age: 53 Year
  Sex: Male

DRUGS (19)
  1. METFORMIN HYDROCHLORIDE [Suspect]
     Active Substance: METFORMIN HYDROCHLORIDE
     Indication: Product used for unknown indication
     Route: 048
  2. ATORVASTATIN CALCIUM [Suspect]
     Active Substance: ATORVASTATIN CALCIUM
     Indication: Product used for unknown indication
     Route: 065
  3. ATORVASTATIN CALCIUM [Suspect]
     Active Substance: ATORVASTATIN CALCIUM
     Route: 065
  4. ATORVASTATIN CALCIUM [Suspect]
     Active Substance: ATORVASTATIN CALCIUM
     Route: 065
  5. ATORVASTATIN CALCIUM [Suspect]
     Active Substance: ATORVASTATIN CALCIUM
     Dosage: NOT SPECIFIED
     Route: 065
  6. SANDOSTATIN [Suspect]
     Active Substance: OCTREOTIDE ACETATE
     Indication: Acromegaly
     Route: 030
  7. SANDOSTATIN [Suspect]
     Active Substance: OCTREOTIDE ACETATE
     Route: 058
  8. SANDOSTATIN [Suspect]
     Active Substance: OCTREOTIDE ACETATE
     Route: 030
  9. BISOPROLOL FUMARATE [Concomitant]
     Active Substance: BISOPROLOL FUMARATE
     Indication: Product used for unknown indication
     Route: 065
  10. BOSENTAN [Concomitant]
     Active Substance: BOSENTAN
     Indication: Product used for unknown indication
  11. PERINDOPRIL ARGININE [Concomitant]
     Active Substance: PERINDOPRIL ARGININE
     Indication: Product used for unknown indication
     Route: 048
  12. PERINDOPRIL ARGININE [Concomitant]
     Active Substance: PERINDOPRIL ARGININE
     Route: 048
  13. DOSTINEX [Concomitant]
     Active Substance: CABERGOLINE
     Indication: Product used for unknown indication
     Route: 048
  14. FUROSEMIDE [Concomitant]
     Active Substance: FUROSEMIDE
     Indication: Product used for unknown indication
     Dosage: NOT SPECIFIED
  15. SOMAVERT [Concomitant]
     Active Substance: PEGVISOMANT
     Indication: Product used for unknown indication
     Dosage: POWDER FOR SOLUTION
     Route: 058
  16. SOMAVERT [Concomitant]
     Active Substance: PEGVISOMANT
     Dosage: POWDER FOR SOLUTION
     Route: 065
  17. TAMSULOSIN HYDROCHLORIDE [Concomitant]
     Active Substance: TAMSULOSIN HYDROCHLORIDE
     Indication: Product used for unknown indication
     Route: 065
  18. METFORMIN [Concomitant]
     Active Substance: METFORMIN HYDROCHLORIDE
     Indication: Product used for unknown indication
  19. BISOPROLOL [Concomitant]
     Active Substance: BISOPROLOL
     Indication: Product used for unknown indication

REACTIONS (25)
  - Abdominal distension [Recovered/Resolved]
  - Blister [Recovered/Resolved]
  - Blood cholesterol abnormal [Recovered/Resolved]
  - Blood pressure fluctuation [Recovered/Resolved]
  - Blood pressure increased [Recovered/Resolved]
  - Dyspnoea exertional [Recovered/Resolved]
  - Faeces soft [Recovered/Resolved]
  - Flatulence [Recovered/Resolved]
  - Gastroenteritis viral [Recovered/Resolved]
  - Headache [Recovered/Resolved]
  - Injection site erosion [Recovered/Resolved]
  - Needle issue [Recovered/Resolved]
  - Injection site injury [Recovered/Resolved]
  - Insulin-like growth factor increased [Recovered/Resolved]
  - Lactose intolerance [Recovered/Resolved]
  - Renal haematoma [Recovered/Resolved]
  - Arthralgia [Recovered/Resolved]
  - Pain [Recovered/Resolved]
  - Heart rate decreased [Recovered/Resolved]
  - Fatigue [Recovered/Resolved]
  - Erythema [Recovered/Resolved]
  - Diarrhoea [Recovered/Resolved]
  - Therapeutic response decreased [Recovered/Resolved]
  - Inappropriate schedule of product administration [Recovered/Resolved]
  - Product dispensing error [Recovered/Resolved]
